FAERS Safety Report 11933756 (Version 2)
Quarter: 2016Q1

REPORT INFORMATION
  Report Type: Spontaneous
  Country: US (occurrence: US)
  Receive Date: 20160121
  Receipt Date: 20160215
  Transmission Date: 20160526
  Serious: Yes (Death, Hospitalization, Other)
  Sender: FDA-Public Use
  Company Number: US-ROCHE-1694226

PATIENT
  Sex: Female
  Weight: 70.6 kg

DRUGS (14)
  1. FUROSEMIDE. [Concomitant]
     Active Substance: FUROSEMIDE
     Dosage: OUTSIDE PRESCRIPTION
     Route: 048
  2. LETROZOLE. [Concomitant]
     Active Substance: LETROZOLE
     Route: 048
  3. XARELTO [Concomitant]
     Active Substance: RIVAROXABAN
     Route: 048
  4. IBRANCE [Suspect]
     Active Substance: PALBOCICLIB
     Indication: PRODUCT USED FOR UNKNOWN INDICATION
     Dosage: D1-21 Q 28 DAYS
     Route: 048
     Dates: start: 201508
  5. PANTOPRAZOLE SODIUM. [Concomitant]
     Active Substance: PANTOPRAZOLE SODIUM
     Route: 065
  6. AVASTIN [Suspect]
     Active Substance: BEVACIZUMAB
     Indication: BREAST CANCER
     Route: 065
  7. ARIMIDEX [Suspect]
     Active Substance: ANASTROZOLE
     Indication: BREAST CANCER
     Route: 048
     Dates: end: 20150123
  8. ADRIAMYCIN [Concomitant]
     Active Substance: DOXORUBICIN HYDROCHLORIDE
  9. AFINITOR [Concomitant]
     Active Substance: EVEROLIMUS
  10. PERCOCET [Concomitant]
     Active Substance: ACETAMINOPHEN\OXYCODONE HYDROCHLORIDE
     Indication: PAIN
     Dosage: 7.5-325 MG: TAKE 1 PO Q4-6H PRN
     Route: 048
  11. TAXOL [Concomitant]
     Active Substance: PACLITAXEL
     Dosage: WEEKLY
     Route: 065
  12. DULCOLAX (BISACODYL) [Concomitant]
     Active Substance: BISACODYL
     Route: 048
  13. METOPROLOL TARTRATE. [Concomitant]
     Active Substance: METOPROLOL TARTRATE
     Route: 048
  14. AROMASIN [Concomitant]
     Active Substance: EXEMESTANE

REACTIONS (10)
  - Thrombocytopenia [Unknown]
  - Breast cancer recurrent [Fatal]
  - Lymphadenopathy [Fatal]
  - Deep vein thrombosis [Unknown]
  - Cerebrovascular accident [Unknown]
  - Intestinal obstruction [Unknown]
  - Neutropenia [Unknown]
  - Metastases to bone [Fatal]
  - Pancreatitis [Fatal]
  - Metastases to liver [Unknown]
